FAERS Safety Report 8582426-8 (Version None)
Quarter: 2012Q3

REPORT INFORMATION
  Report Type: 
  Country: None (occurrence: None)
  Receive Date: 20120809
  Receipt Date: 20120802
  Transmission Date: 20120928
  Serious: Yes (Hospitalization)
  Sender: FDA-Public Use
  Company Number: FR-GLAXOSMITHKLINE-B0819911A

PATIENT
  Sex: Male

DRUGS (13)
  1. ALFUZOSIN HCL [Suspect]
     Indication: PRODUCT USED FOR UNKNOWN INDICATION
     Dosage: 10MG PER DAY
     Route: 048
     Dates: end: 20120609
  2. ASPIRIN [Concomitant]
  3. DIGOXIN [Concomitant]
  4. LANTUS [Concomitant]
  5. ZOPICLONE [Concomitant]
  6. TRANSIPEG [Concomitant]
  7. AVODART [Suspect]
     Indication: PROSTATIC ADENOMA
     Dosage: .5MG PER DAY
     Route: 048
     Dates: end: 20120609
  8. RAMIPRIL [Concomitant]
  9. OXAZEPAM [Concomitant]
  10. FUROSEMIDE [Suspect]
     Indication: HYPERTENSION
     Dosage: 40MG PER DAY
     Route: 048
     Dates: start: 20110101, end: 20120609
  11. MEMANTINE HCL [Concomitant]
  12. MOLSIDOMINE [Concomitant]
  13. SINGULAIR [Concomitant]

REACTIONS (4)
  - ORTHOSTATIC HYPOTENSION [None]
  - HEAD INJURY [None]
  - MALAISE [None]
  - FALL [None]
